FAERS Safety Report 7060610-2 (Version None)
Quarter: 2010Q4

REPORT INFORMATION
  Report Type: 
  Country: None (occurrence: None)
  Receive Date: 20101025
  Receipt Date: 20101021
  Transmission Date: 20110411
  Serious: Yes (Death, Life-Threatening, Hospitalization)
  Sender: FDA-Public Use
  Company Number: DK-ASTRAZENECA-2010SE49891

PATIENT
  Sex: Male
  Weight: 90 kg

DRUGS (5)
  1. SEROQUEL [Suspect]
     Indication: SCHIZOPHRENIA, PARANOID TYPE
     Route: 048
     Dates: start: 20100815, end: 20100916
  2. TRUXAL [Suspect]
     Indication: SCHIZOPHRENIA, PARANOID TYPE
     Route: 048
     Dates: start: 20100815, end: 20100916
  3. NEXIUM [Concomitant]
     Indication: GASTRITIS
     Route: 048
     Dates: start: 20100815, end: 20100916
  4. NITRAZEPAM ^DAK^ [Concomitant]
     Indication: SEDATIVE THERAPY
     Route: 048
     Dates: start: 20100815, end: 20100916
  5. GABAPENTIN [Concomitant]
     Indication: DRUG WITHDRAWAL CONVULSIONS
     Route: 065
     Dates: start: 20100815, end: 20100916

REACTIONS (7)
  - ASTHENIA [None]
  - BLOOD CREATININE INCREASED [None]
  - BLOOD GLUCOSE INCREASED [None]
  - HYPERPYREXIA [None]
  - PULMONARY EMBOLISM [None]
  - RHABDOMYOLYSIS [None]
  - SOMNOLENCE [None]
